FAERS Safety Report 8837296 (Version 1)
Quarter: 2012Q4

REPORT INFORMATION
  Report Type: Spontaneous
  Country: US (occurrence: None)
  Receive Date: 20121011
  Receipt Date: 20121011
  Transmission Date: 20130627
  Serious: No
  Sender: FDA-Public Use
  Company Number: None

PATIENT
  Age: 12 Year
  Sex: Female
  Weight: 41.73 kg

DRUGS (2)
  1. MONTELUKAST [Suspect]
     Indication: ALLERGIC RHINITIS
     Dosage: 5mg tab once day PO
     Route: 048
     Dates: start: 20120919, end: 20120923
  2. MONTELUKAST [Suspect]
     Indication: ASTHMA
     Dosage: 5mg tab once day PO
     Route: 048
     Dates: start: 20120919, end: 20120923

REACTIONS (3)
  - Nausea [None]
  - Dizziness [None]
  - Headache [None]
